FAERS Safety Report 9069479 (Version 1)
Quarter: 2013Q1

REPORT INFORMATION
  Report Type: Spontaneous
  Country: FR (occurrence: FR)
  Receive Date: 20130215
  Receipt Date: 20130215
  Transmission Date: 20140127
  Serious: Yes (Hospitalization)
  Sender: FDA-Public Use
  Company Number: FR-B.I. PHARMACEUTICALS,INC./RIDGEFIELD-2013-FF-00431FF

PATIENT
  Age: 78 None
  Sex: Male

DRUGS (6)
  1. PRADAXA [Suspect]
     Indication: ATRIAL FIBRILLATION
     Dosage: 110 MG
     Route: 048
     Dates: start: 20121112, end: 20130114
  2. PLAVIX [Concomitant]
     Dosage: 75 MG
     Route: 048
  3. AMIODARONE [Concomitant]
     Dosage: 100 MG
     Route: 048
  4. COTRIATEC [Concomitant]
     Route: 048
  5. SIMVASTATINE [Concomitant]
     Dosage: 40 MG
     Route: 048
  6. BISOPROLOL [Concomitant]
     Dosage: 1.25 MG
     Route: 048
     Dates: end: 20130114

REACTIONS (2)
  - Haemoptysis [Recovered/Resolved]
  - Epistaxis [Recovered/Resolved]
